FAERS Safety Report 8177037-2 (Version None)
Quarter: 2012Q1

REPORT INFORMATION
  Report Type: 
  Country: None (occurrence: None)
  Receive Date: 20120301
  Receipt Date: 20120228
  Transmission Date: 20120608
  Serious: Yes (Death, Hospitalization)
  Sender: FDA-Public Use
  Company Number: GT-B.I. PHARMACEUTICALS,INC./RIDGEFIELD-2012-MX-00086MX

PATIENT
  Age: 81 Year
  Sex: Male

DRUGS (1)
  1. DABIGATRAN ETEXILATE [Suspect]
     Indication: CEREBROVASCULAR ACCIDENT PROPHYLAXIS
     Dosage: 220 MG
     Route: 048
     Dates: start: 20111201, end: 20120227

REACTIONS (2)
  - CARDIAC DISORDER [None]
  - GASTROINTESTINAL HAEMORRHAGE [None]
